FAERS Safety Report 17649837 (Version 5)
Quarter: 2020Q4

REPORT INFORMATION
  Report Type: Spontaneous
  Country: US (occurrence: US)
  Receive Date: 20200408
  Receipt Date: 20201013
  Transmission Date: 20210113
  Serious: No
  Sender: FDA-Public Use
  Company Number: US-VIFOR (INTERNATIONAL) INC.-VIT-2020-04703

PATIENT
  Age: 65 Year
  Sex: Female
  Weight: 92.62 kg

DRUGS (8)
  1. VELTASSA [Suspect]
     Active Substance: PATIROMER
     Route: 048
     Dates: start: 202007
  2. HYDRALAZINE [Concomitant]
     Active Substance: HYDRALAZINE HYDROCHLORIDE
  3. VELTASSA [Suspect]
     Active Substance: PATIROMER
     Indication: HYPERKALAEMIA
     Route: 048
     Dates: start: 20190326
  4. LISINOPRIL. [Concomitant]
     Active Substance: LISINOPRIL
  5. METOPROLOL. [Concomitant]
     Active Substance: METOPROLOL
  6. VELTASSA [Suspect]
     Active Substance: PATIROMER
     Route: 048
     Dates: start: 202003
  7. VELTASSA [Suspect]
     Active Substance: PATIROMER
     Route: 048
  8. VELTASSA [Suspect]
     Active Substance: PATIROMER

REACTIONS (6)
  - Haemorrhoids [Not Recovered/Not Resolved]
  - Off label use [Unknown]
  - Blood potassium increased [Unknown]
  - Muscle spasms [Unknown]
  - Dyschezia [Unknown]
  - Occult blood positive [Unknown]

NARRATIVE: CASE EVENT DATE: 20190326
